FAERS Safety Report 24227057 (Version 2)
Quarter: 2024Q3

REPORT INFORMATION
  Report Type: Spontaneous
  Country: US (occurrence: US)
  Receive Date: 20240820
  Receipt Date: 20240927
  Transmission Date: 20241016
  Serious: No
  Sender: PFIZER
  Company Number: US-PFIZER INC-202400237256

PATIENT
  Age: 14 Year
  Sex: Female
  Weight: 35.38 kg

DRUGS (2)
  1. GENOTROPIN [Suspect]
     Active Substance: SOMATROPIN
     Indication: Growth hormone deficiency
     Dosage: 1.6 MG, 1X/DAY
     Route: 058
     Dates: start: 201812
  2. ESTRADIOL [Concomitant]
     Active Substance: ESTRADIOL
     Indication: Premature menopause
     Dosage: UNK

REACTIONS (2)
  - Expired device used [Unknown]
  - Device information output issue [Unknown]
